FAERS Safety Report 7385883-8 (Version None)
Quarter: 2011Q1

REPORT INFORMATION
  Report Type: 
  Country: None (occurrence: None)
  Receive Date: 20110331
  Receipt Date: 20110315
  Transmission Date: 20110831
  Serious: Yes (Hospitalization)
  Sender: FDA-Public Use
  Company Number: US-JNJFOC-20110306865

PATIENT
  Sex: Female
  Weight: 32.9 kg

DRUGS (3)
  1. PLACEBO [Suspect]
     Indication: KAWASAKI'S DISEASE
     Dosage: ONE DOSE
     Route: 042
  2. BLINDED; INFLIXIMAB, RECOMBINANT [Suspect]
     Indication: KAWASAKI'S DISEASE
     Dosage: ONE DOSE
     Route: 042
  3. IMMUNOGLOBULINS [Concomitant]
     Indication: KAWASAKI'S DISEASE
     Route: 042

REACTIONS (1)
  - KAWASAKI'S DISEASE [None]
